FAERS Safety Report 6936794-0 (Version None)
Quarter: 2010Q3

REPORT INFORMATION
  Report Type: 
  Country: None (occurrence: None)
  Receive Date: 20100823
  Receipt Date: 20100810
  Transmission Date: 20110219
  Serious: No
  Sender: FDA-Public Use
  Company Number: US-B.I. PHARMACEUTICALS,INC./RIDGEFIELD-2010-BP-09183BP

PATIENT
  Sex: Female

DRUGS (6)
  1. ZANTAC 150 [Suspect]
     Indication: ABDOMINAL DISCOMFORT
     Route: 048
     Dates: start: 20100724
  2. ZANTAC 150 [Suspect]
     Indication: DYSPEPSIA
  3. TRIAMTERENE W/HCTZ [Concomitant]
     Indication: HYPERTENSION
     Route: 048
     Dates: start: 20040101
  4. DILTIAZEM HCL [Concomitant]
     Indication: PALPITATIONS
     Dosage: 240 MG
     Route: 048
     Dates: start: 20080101
  5. ASPIRIN [Concomitant]
     Indication: PALPITATIONS
     Dosage: 81 MG
     Route: 048
     Dates: start: 20080101
  6. AZULFIDINE EN-TABS [Concomitant]
     Indication: RHEUMATOID ARTHRITIS
     Route: 048
     Dates: start: 20080101

REACTIONS (5)
  - DYSPEPSIA [None]
  - ERUCTATION [None]
  - FAECES DISCOLOURED [None]
  - RECTAL HAEMORRHAGE [None]
  - SINUSITIS [None]
